FAERS Safety Report 5131832-2 (Version None)
Quarter: 2006Q4

REPORT INFORMATION
  Report Type: 
  Country: None (occurrence: None)
  Receive Date: 20061016
  Receipt Date: 20061002
  Transmission Date: 20070319
  Serious: Yes (Other)
  Sender: FDA-Public Use
  Company Number: 2006123215

PATIENT
  Sex: Male

DRUGS (1)
  1. BEXTRA [Suspect]
     Dosage: ORAL
     Route: 048
     Dates: start: 20041108

REACTIONS (2)
  - ISCHAEMIC STROKE [None]
  - VASCULAR BYPASS GRAFT [None]
